FAERS Safety Report 6443934-9 (Version None)
Quarter: 2009Q4

REPORT INFORMATION
  Report Type: 
  Country: None (occurrence: None)
  Receive Date: 20091113
  Receipt Date: 20091105
  Transmission Date: 20100525
  Serious: Yes (Life-Threatening)
  Sender: FDA-Public Use
  Company Number: 426256

PATIENT
  Age: 77 Year
  Sex: Female

DRUGS (7)
  1. VANCOMYCIN [Suspect]
     Indication: WOUND INFECTION
     Dosage: 1 G, 1 DAY, INTRAVENOUS
     Route: 042
  2. (FUROSEMIDE) [Suspect]
     Indication: OEDEMA PERIPHERAL
     Dosage: 20 MG, ORAL; 20 MG, ORAL
     Route: 048
  3. (FUROSEMIDE) [Suspect]
     Indication: PLEURAL EFFUSION
     Dosage: 20 MG, ORAL; 20 MG, ORAL
     Route: 048
  4. (RAMIPRIL) [Concomitant]
  5. ATENOLOL [Concomitant]
  6. (BENDROFLUMETHIAZIDE) [Concomitant]
  7. (OPIOIDS) [Concomitant]

REACTIONS (11)
  - CARDIAC ARREST [None]
  - DRUG INTERACTION [None]
  - HEMIPELVECTOMY [None]
  - HYPERKALAEMIA [None]
  - HYPOKALAEMIA [None]
  - HYPOMAGNESAEMIA [None]
  - IMPAIRED HEALING [None]
  - OEDEMA PERIPHERAL [None]
  - PLEURAL EFFUSION [None]
  - VENTRICULAR TACHYCARDIA [None]
  - WOUND INFECTION [None]
